FAERS Safety Report 6131594-6 (Version None)
Quarter: 2009Q1

REPORT INFORMATION
  Report Type: 
  Country: None (occurrence: None)
  Receive Date: 20090325
  Receipt Date: 20081117
  Transmission Date: 20090719
  Serious: No
  Sender: FDA-Public Use
  Company Number: US-BRISTOL-MYERS SQUIBB COMPANY-14409270

PATIENT
  Age: 44 Year
  Sex: Male

DRUGS (8)
  1. ERBITUX [Suspect]
     Indication: COLORECTAL CANCER
     Dosage: GIVEN 500MG IV ON 10-NOV-2008
     Route: 042
     Dates: start: 20081015, end: 20081015
  2. IRINOTECAN HCL [Suspect]
     Indication: CHEMOTHERAPY
  3. DIPHENHYDRAMINE [Concomitant]
     Indication: PREMEDICATION
     Dates: start: 20081110
  4. DEXAMETHASONE TAB [Concomitant]
     Indication: PREMEDICATION
     Dates: start: 20081110
  5. TYLENOL [Concomitant]
     Indication: PREMEDICATION
     Dates: start: 20081110
  6. ATENOLOL [Concomitant]
  7. PERCOCET [Concomitant]
  8. OMEPRAZOLE [Concomitant]

REACTIONS (2)
  - DRUG ADMINISTRATION ERROR [None]
  - RASH GENERALISED [None]
